FAERS Safety Report 8681099 (Version 5)
Quarter: 2013Q2

REPORT INFORMATION
  Report Type: Report from Study
  Country: NL (occurrence: NL)
  Receive Date: 20120724
  Receipt Date: 20130606
  Transmission Date: 20140414
  Serious: Yes (Hospitalization)
  Sender: FDA-Public Use
  Company Number: NL-B.I. PHARMACEUTICALS,INC./RIDGEFIELD-2012-RD-00363EU

PATIENT
  Age: 73 Year
  Sex: Male
  Weight: 100 kg

DRUGS (19)
  1. BI 1356 [Suspect]
     Indication: TYPE 2 DIABETES MELLITUS
     Dosage: 5 MG
     Dates: start: 20111116
  2. ACENOCOUMAROL [Suspect]
     Indication: ISCHAEMIC HEART DISEASE PROPHYLAXIS
     Dosage: 1 MG
     Route: 048
  3. ESOMEPRAZOL [Concomitant]
     Indication: PROPHYLAXIS AGAINST GASTROINTESTINAL ULCER
     Dosage: 20 MG
     Route: 048
     Dates: end: 20120608
  4. ISORDIL [Concomitant]
     Indication: ANGINA PECTORIS
     Dosage: 5 MG
     Route: 048
     Dates: end: 20121017
  5. ISOSORBINE MONONITRAAT 25 MG [Concomitant]
     Indication: ANGINA PECTORIS
     Dosage: 25 MG
     Route: 048
     Dates: end: 20120509
  6. DIOVAN [Concomitant]
     Indication: HYPERTENSION
     Dosage: 160 MG
     Route: 048
  7. CRESTOR [Concomitant]
     Indication: MYOCARDIAL INFARCTION
     Dosage: 10 MG
     Route: 048
  8. ALENDRONINEZUUR [BISPHOSPHONATE] [Concomitant]
     Indication: OSTEOPOROSIS
     Dosage: 70 MG
     Route: 048
  9. ZALDIAR [Concomitant]
     Indication: RESTLESS LEGS SYNDROME
     Dosage: 75 MG
     Route: 048
     Dates: start: 20111003
  10. KEPPRA [Concomitant]
     Indication: EPILEPSY
     Dosage: 1000 MG
     Route: 048
  11. SYMBICORT [Concomitant]
     Indication: CHRONIC OBSTRUCTIVE PULMONARY DISEASE
     Dosage: 400 MCG
     Route: 055
     Dates: start: 20110929
  12. SPIRIVA [Concomitant]
     Indication: CHRONIC OBSTRUCTIVE PULMONARY DISEASE
     Dosage: 18 MCG
     Route: 055
  13. FUROSEMIDE [Concomitant]
     Indication: CARDIAC FAILURE
     Dosage: 40 MG
     Route: 048
     Dates: start: 20120125
  14. TRAMADOL [Concomitant]
     Indication: PAIN IN EXTREMITY
     Dosage: 100 MG
     Route: 048
  15. KETOCONAZOL CREME [Concomitant]
     Indication: SKIN EXFOLIATION
     Dosage: 2 UNK
     Route: 061
     Dates: start: 20120419
  16. LANETTE CREME[THIS IS AN OVERALL CREME WITH NO MEDICATION ADDED] [Concomitant]
     Indication: SKIN EXFOLIATION
     Dosage: 2 UNK
     Route: 061
     Dates: start: 20120419
  17. ALLOPURINOL [Concomitant]
     Indication: GOUT
     Dosage: 300 MG
     Route: 048
  18. INHIBIN [Concomitant]
     Indication: RESTLESS LEGS SYNDROME
     Dosage: 100 MG
     Route: 048
     Dates: start: 20120117, end: 20120710
  19. METFORMINE [Concomitant]
     Dosage: 1000 MG
     Route: 048
     Dates: start: 20061120

REACTIONS (10)
  - Gastrointestinal haemorrhage [Recovered/Resolved]
  - Myocardial ischaemia [Recovered/Resolved with Sequelae]
  - Depression [Not Recovered/Not Resolved]
  - Fatigue [Not Recovered/Not Resolved]
  - Dyspnoea exertional [Not Recovered/Not Resolved]
  - Cardiac failure [Recovered/Resolved]
  - Headache [Not Recovered/Not Resolved]
  - Bursitis [Not Recovered/Not Resolved]
  - Intervertebral disc protrusion [Not Recovered/Not Resolved]
  - Pollakiuria [Not Recovered/Not Resolved]
